FAERS Safety Report 9645286 (Version 1)
Quarter: 2013Q4

REPORT INFORMATION
  Report Type: Spontaneous
  Country: NL (occurrence: NL)
  Receive Date: 20131025
  Receipt Date: 20131025
  Transmission Date: 20140711
  Serious: Yes (Hospitalization)
  Sender: FDA-Public Use
  Company Number: PHHY2013NL120262

PATIENT
  Sex: Male

DRUGS (8)
  1. CARBAMAZEPINE [Suspect]
     Indication: TRIGEMINAL NEURALGIA
     Dosage: 200MG, 5 DF DAILY
     Dates: start: 2013, end: 20131017
  2. METOPROLOL [Suspect]
     Dosage: 200 MG, UNK
     Dates: start: 2013
  3. LYRICA [Concomitant]
     Dosage: 150MG, 3 DF DAILY WHEN NECESARY
  4. PARACETAMOL [Concomitant]
     Dosage: 500MG, 3 DF DAILY WHEN NECESARY
  5. TRAMADOL [Concomitant]
     Dosage: 100MG/ML, 3 DF DAILY OF 40GTT DROP
  6. SIMVASTATIN [Concomitant]
     Dosage: 40 MG, UNK
  7. METFORMIN [Concomitant]
     Dosage: 500 MG, UNK
  8. AMLODIPINE W/HYDROCHLOROTHIAZIDE/VALSARTAN [Concomitant]
     Dosage: AMLO 10 MG, HCTZ 25 MG, VALS 160 MG

REACTIONS (2)
  - Sinus bradycardia [Recovered/Resolved]
  - Sinus arrest [Recovered/Resolved]
